FAERS Safety Report 4465471-3 (Version None)
Quarter: 2004Q4

REPORT INFORMATION
  Report Type: 
  Country: None (occurrence: None)
  Receive Date: 20041001
  Receipt Date: 20040928
  Transmission Date: 20050328
  Serious: Yes (Other)
  Sender: FDA-Public Use
  Company Number: 002801

PATIENT
  Sex: Female

DRUGS (8)
  1. MEDROXYPROGESTERONE ACETATE [Suspect]
  2. PREMARIN [Suspect]
  3. PROVERA [Suspect]
  4. PREMPHASE (PREMARIN;CYCRIN 14/14) [Suspect]
  5. MEDROXYPROGESTERONE ACETATE [Suspect]
  6. MEDROXYPROGESTERONE ACETATE [Suspect]
  7. PROMETRIUM [Suspect]
  8. ESTRATEST [Suspect]

REACTIONS (1)
  - BREAST CANCER FEMALE [None]
